FAERS Safety Report 10182596 (Version 1)
Quarter: 2014Q2

REPORT INFORMATION
  Report Type: Spontaneous
  Country: NG (occurrence: None)
  Receive Date: 20140516
  Receipt Date: 20140516
  Transmission Date: 20141212
  Serious: Yes (Hospitalization)
  Sender: FDA-Public Use
  Company Number: ACET20140013

PATIENT
  Age: 42 Year
  Sex: Female

DRUGS (3)
  1. Q-PAP EXTRA STRENGTH [Suspect]
     Indication: PYREXIA
     Route: 048
     Dates: start: 201212
  2. ZIDOVUDINE [Concomitant]
  3. NEVIRAPINE [Concomitant]

REACTIONS (8)
  - Generalised tonic-clonic seizure [None]
  - Hyperhidrosis [None]
  - Asthenia [None]
  - Cough [None]
  - Dyspnoea [None]
  - Weight decreased [None]
  - Peripheral swelling [None]
  - Pleural effusion [None]
